FAERS Safety Report 7546740-7 (Version None)
Quarter: 2011Q2

REPORT INFORMATION
  Report Type: 
  Country: None (occurrence: None)
  Receive Date: 20110614
  Receipt Date: 20101015
  Transmission Date: 20111010
  Serious: Yes (Death)
  Sender: FDA-Public Use
  Company Number: B0680738A

PATIENT
  Age: 38 Year
  Sex: Male
  Weight: 68 kg

DRUGS (11)
  1. RITONAVIR [Suspect]
     Indication: HIV INFECTION
     Dosage: 100MG PER DAY
     Route: 048
     Dates: start: 20100910, end: 20100912
  2. POTASSIUM CHLORIDE [Concomitant]
  3. ENTECAVIR [Concomitant]
     Dosage: 1MG PER DAY
  4. ATRIPLA [Suspect]
     Indication: HIV INFECTION
     Route: 048
     Dates: start: 20100820, end: 20100910
  5. PANTOPRAZOLE SODIUM [Concomitant]
     Route: 042
  6. MEROPENEM [Concomitant]
     Route: 042
  7. ABACAVIR SULFATE/LAMIVUDINE [Suspect]
     Indication: HIV INFECTION
     Route: 048
     Dates: start: 20100910, end: 20100912
  8. DARUNAVIR ETHANOLATE [Suspect]
     Indication: HIV INFECTION
     Dosage: 800MG PER DAY
     Route: 048
     Dates: start: 20100910, end: 20100912
  9. ZINACEF [Concomitant]
     Route: 042
  10. ALBUMIN (HUMAN) [Concomitant]
  11. PREDNISOLONE [Concomitant]
     Route: 048

REACTIONS (11)
  - ANAEMIA [None]
  - BLOOD ALBUMIN DECREASED [None]
  - ENCEPHALOPATHY [None]
  - DEATH [None]
  - DIARRHOEA [None]
  - PYREXIA [None]
  - THROMBOCYTOPENIA [None]
  - SPLENOMEGALY [None]
  - ASCITES [None]
  - JAUNDICE [None]
  - HYPOTENSION [None]
